FAERS Safety Report 7990207-9 (Version None)
Quarter: 2011Q4

REPORT INFORMATION
  Report Type: 
  Country: None (occurrence: None)
  Receive Date: 20111219
  Receipt Date: 20111215
  Transmission Date: 20120403
  Serious: Yes (Other)
  Sender: FDA-Public Use
  Company Number: JP-PFIZER INC-2011305771

PATIENT
  Age: 33 Year
  Sex: Female

DRUGS (10)
  1. MAGMITT [Concomitant]
     Dosage: UNK
  2. UBRETID [Concomitant]
     Dosage: UNK
  3. PARLODEL [Concomitant]
     Dosage: UNK
  4. ROHYPNOL [Concomitant]
     Dosage: UNK
  5. ZOLPIDEM [Concomitant]
     Dosage: UNK
  6. LEXOTAN [Concomitant]
     Dosage: UNK
  7. VARENICLINE TARTRATE [Suspect]
     Dosage: 1 MG, 2X/DAY
     Route: 048
  8. CLONAZEPAM [Concomitant]
     Dosage: UNK
  9. ZYPREXA [Concomitant]
     Dosage: UNK
  10. BICAMOL [Concomitant]
     Dosage: UNK

REACTIONS (1)
  - DYSKINESIA [None]
